FAERS Safety Report 7125644-8 (Version None)
Quarter: 2010Q4

REPORT INFORMATION
  Report Type: 
  Country: None (occurrence: None)
  Receive Date: 20101129
  Receipt Date: 20101116
  Transmission Date: 20110411
  Serious: No
  Sender: FDA-Public Use
  Company Number: US-JNJFOC-20100500240

PATIENT
  Sex: Female
  Weight: 54.43 kg

DRUGS (5)
  1. FENTANYL-100 [Suspect]
     Indication: PAIN
     Dosage: NDC# 0781-7242-55
     Route: 062
     Dates: start: 20100313, end: 20101115
  2. FENTANYL-100 [Suspect]
     Route: 062
     Dates: start: 20100313, end: 20101115
  3. FENTANYL-100 [Suspect]
     Route: 062
     Dates: start: 20100313, end: 20101115
  4. LORTAB [Concomitant]
     Indication: PAIN
     Dosage: DOSE: 10/500MG
     Route: 048
  5. HYDROCODONE [Concomitant]
     Indication: PAIN
     Dosage: 10-500MG AS NEEDED
     Route: 048

REACTIONS (5)
  - DRUG INEFFECTIVE [None]
  - INCORRECT DRUG ADMINISTRATION RATE [None]
  - PRODUCT ADHESION ISSUE [None]
  - PRODUCT QUALITY ISSUE [None]
  - SOMNOLENCE [None]
